FAERS Safety Report 5477866-X (Version None)
Quarter: 2007Q4

REPORT INFORMATION
  Report Type: 
  Country: None (occurrence: None)
  Receive Date: 20071004
  Receipt Date: 20070920
  Transmission Date: 20080405
  Serious: No
  Sender: FDA-Public Use
  Company Number: US-BOEHRINGER INGELHEIM PHARMACEUTICALS, INC.-2007-BP-21475BP

PATIENT
  Sex: Female

DRUGS (5)
  1. SPIRIVA [Suspect]
     Indication: CHRONIC OBSTRUCTIVE PULMONARY DISEASE
     Route: 055
     Dates: start: 20050301
  2. SPIRIVA [Suspect]
     Indication: ASTHMA
  3. NORVASC [Concomitant]
     Indication: HYPERTENSION
  4. ASPIRIN [Concomitant]
  5. VITAMINS [Concomitant]

REACTIONS (2)
  - BODY HEIGHT DECREASED [None]
  - FEELING ABNORMAL [None]
